FAERS Safety Report 19190704 (Version 1)
Quarter: 2021Q2

REPORT INFORMATION
  Report Type: Spontaneous
  Country: US (occurrence: US)
  Receive Date: 20210428
  Receipt Date: 20210428
  Transmission Date: 20210717
  Serious: No
  Sender: FDA-Public Use
  Company Number: US-ELI_LILLY_AND_COMPANY-US202104010696

PATIENT
  Age: 73 Year
  Sex: Male

DRUGS (4)
  1. HUMALOG MIX75/25 [Suspect]
     Active Substance: INSULIN LISPRO
     Dosage: 50 U, EACH EVENING
     Route: 065
  2. HUMALOG MIX75/25 [Suspect]
     Active Substance: INSULIN LISPRO
     Indication: PRODUCT USED FOR UNKNOWN INDICATION
     Dosage: 35 U, EACH MORNING
     Route: 065
  3. HUMALOG MIX75/25 [Suspect]
     Active Substance: INSULIN LISPRO
     Dosage: 60 U, EACH MORNING
     Route: 065
  4. HUMALOG MIX75/25 [Suspect]
     Active Substance: INSULIN LISPRO
     Dosage: 25 U, EACH EVENING
     Route: 065

REACTIONS (8)
  - Limb injury [Unknown]
  - Device difficult to use [Unknown]
  - Vitreous floaters [Unknown]
  - Musculoskeletal stiffness [Unknown]
  - Product dose omission issue [Unknown]
  - Foot fracture [Unknown]
  - Cataract [Unknown]
  - Retinal disorder [Unknown]

NARRATIVE: CASE EVENT DATE: 202102
